FAERS Safety Report 15271777 (Version 1)
Quarter: 2018Q3

REPORT INFORMATION
  Report Type: Spontaneous
  Country: US (occurrence: US)
  Receive Date: 20180727
  Receipt Date: 20180727
  Transmission Date: 20181010
  Serious: Yes (Death)
  Sender: FDA-Public Use
  Company Number: None

PATIENT
  Sex: Female

DRUGS (7)
  1. ATORVASTATIN [Concomitant]
     Active Substance: ATORVASTATIN
  2. CALCIUM [Concomitant]
     Active Substance: CALCIUM
  3. ZARXIO [Suspect]
     Active Substance: FILGRASTIM-SNDZ
     Indication: PLASMA CELL MYELOMA
     Route: 058
     Dates: start: 20180522
  4. ASPIRIN. [Concomitant]
     Active Substance: ASPIRIN
  5. CLOPIDOGREL [Concomitant]
     Active Substance: CLOPIDOGREL BISULFATE
  6. POMALYST [Concomitant]
     Active Substance: POMALIDOMIDE
  7. VITAMIN B12 [Concomitant]
     Active Substance: CYANOCOBALAMIN

REACTIONS (1)
  - Death [None]
